FAERS Safety Report 17408740 (Version 6)
Quarter: 2022Q4

REPORT INFORMATION
  Report Type: Report from Study
  Country: JP (occurrence: JP)
  Receive Date: 20200212
  Receipt Date: 20221208
  Transmission Date: 20230113
  Serious: Yes (Hospitalization)
  Sender: FDA-Public Use
  Company Number: None

PATIENT
  Age: 60 Year
  Sex: Male
  Weight: 92.5 kg

DRUGS (21)
  1. MIDOSTAURIN [Suspect]
     Active Substance: MIDOSTAURIN
     Indication: Acute myeloid leukaemia
     Dosage: 50 MG, BID
     Route: 048
     Dates: start: 20190920
  2. CYTARABINE [Suspect]
     Active Substance: CYTARABINE
     Indication: Acute myeloid leukaemia
     Dosage: 100 MG/M2, QD
     Route: 042
     Dates: start: 20190913
  3. DAUNORUBICIN [Suspect]
     Active Substance: DAUNORUBICIN
     Indication: Acute myeloid leukaemia
     Dosage: 50 MG/M2, QD
     Route: 042
     Dates: start: 20190913
  4. VILDAGLIPTIN [Concomitant]
     Active Substance: VILDAGLIPTIN
     Indication: Type 2 diabetes mellitus
     Dosage: UNK
     Route: 065
     Dates: start: 2013
  5. INSULIN GLARGINE [Concomitant]
     Active Substance: INSULIN GLARGINE
     Indication: Hyperglycaemia
     Dosage: UNK
     Route: 065
     Dates: start: 20200125, end: 20200206
  6. INSULIN LISPRO [Concomitant]
     Active Substance: INSULIN LISPRO
     Indication: Hyperglycaemia
     Dosage: UNK
     Route: 065
     Dates: start: 20200107, end: 20200203
  7. HYDROCORTISONE SODIUM SUCCINATE [Concomitant]
     Active Substance: HYDROCORTISONE SODIUM SUCCINATE
     Indication: Prophylaxis
     Dosage: UNK
     Route: 065
     Dates: start: 20200118, end: 20200118
  8. HYDROCORTISONE SODIUM SUCCINATE [Concomitant]
     Active Substance: HYDROCORTISONE SODIUM SUCCINATE
     Dosage: UNK
     Route: 065
     Dates: start: 20200121, end: 20200121
  9. HYDROCORTISONE SODIUM SUCCINATE [Concomitant]
     Active Substance: HYDROCORTISONE SODIUM SUCCINATE
     Dosage: UNK
     Route: 065
     Dates: start: 20200123, end: 20200123
  10. MITIGLINIDE CALCIUM ANHYDROUS [Concomitant]
     Active Substance: MITIGLINIDE CALCIUM ANHYDROUS
     Indication: Type 2 diabetes mellitus
     Dosage: UNK
     Route: 065
     Dates: start: 2013
  11. BROTIZOLAM [Concomitant]
     Active Substance: BROTIZOLAM
     Indication: Insomnia
     Dosage: UNK
     Route: 065
     Dates: start: 20191104, end: 20200207
  12. ACETAMINOPHEN [Concomitant]
     Active Substance: ACETAMINOPHEN
     Indication: Febrile neutropenia
     Dosage: UNK
     Route: 065
     Dates: start: 20200116, end: 20200116
  13. ACETAMINOPHEN [Concomitant]
     Active Substance: ACETAMINOPHEN
     Indication: Prophylaxis
     Dosage: UNK
     Route: 065
     Dates: start: 20200123, end: 20200126
  14. ACETAMINOPHEN [Concomitant]
     Active Substance: ACETAMINOPHEN
     Dosage: UNK
     Route: 065
     Dates: start: 20200127, end: 20200202
  15. MEROPENEM [Concomitant]
     Active Substance: MEROPENEM
     Indication: Prophylaxis
     Dosage: UNK
     Route: 065
     Dates: start: 20200116, end: 20200121
  16. MEROPENEM [Concomitant]
     Active Substance: MEROPENEM
     Indication: Febrile neutropenia
     Dosage: UNK
     Route: 065
     Dates: start: 20200127, end: 20200128
  17. MEROPENEM [Concomitant]
     Active Substance: MEROPENEM
     Dosage: UNK
     Route: 065
     Dates: start: 20200129, end: 20200207
  18. CEFTAZIDIME [Concomitant]
     Active Substance: CEFTAZIDIME
     Indication: Prophylaxis
     Dosage: UNK
     Route: 065
     Dates: start: 20200121, end: 20200127
  19. ITRACONAZOLE [Concomitant]
     Active Substance: ITRACONAZOLE
     Indication: Infection prophylaxis
     Dosage: UNK
     Route: 065
     Dates: start: 20190913, end: 20200819
  20. FEBUXOSTAT [Concomitant]
     Active Substance: FEBUXOSTAT
     Indication: Prophylaxis
     Dosage: UNK
     Route: 065
     Dates: start: 20190913, end: 20200528
  21. RABEPRAZOLE SODIUM [Concomitant]
     Active Substance: RABEPRAZOLE SODIUM
     Indication: Prophylaxis against gastrointestinal ulcer
     Dosage: UNK
     Route: 065
     Dates: start: 20190920, end: 20201014

REACTIONS (1)
  - Pneumonia [Recovered/Resolved]

NARRATIVE: CASE EVENT DATE: 20200201
